FAERS Safety Report 6877960-2 (Version None)
Quarter: 2010Q3

REPORT INFORMATION
  Report Type: 
  Country: None (occurrence: None)
  Receive Date: 20100727
  Receipt Date: 20100723
  Transmission Date: 20110219
  Serious: Yes (Death, Other)
  Sender: FDA-Public Use
  Company Number: PHHY2010DE48437

PATIENT
  Sex: Female

DRUGS (10)
  1. LEPONEX [Suspect]
     Indication: SCHIZOPHRENIA
     Dosage: UNK
  2. LEPONEX [Suspect]
     Dosage: 100 MG, TID
     Dates: start: 20100704
  3. ANAFRANIL [Concomitant]
     Dosage: 2 DF, BID
  4. PANTOPRAZOLE [Concomitant]
     Dosage: 1 DF, QD
  5. SIMVASTATIN [Concomitant]
     Dosage: 1 DF, QD
  6. SPIRONOLACTONE [Concomitant]
     Dosage: 1 DF, QD
  7. TOREM [Concomitant]
     Dosage: 1-0.5-0-0
  8. ZOLPIDEM TARTRATE [Concomitant]
     Dosage: 1 DF, QHS
  9. NULYTELY [Concomitant]
     Dosage: AT NEED
  10. FALITHROM [Concomitant]
     Dosage: 1/2 TABLET
     Dates: end: 20100706

REACTIONS (4)
  - ANTIPSYCHOTIC DRUG LEVEL INCREASED [None]
  - ENCEPHALOPATHY [None]
  - OVERDOSE [None]
  - RESPIRATORY FAILURE [None]
